FAERS Safety Report 8352476-5 (Version None)
Quarter: 2012Q2

REPORT INFORMATION
  Report Type: 
  Country: None (occurrence: None)
  Receive Date: 20120511
  Receipt Date: 20120507
  Transmission Date: 20120825
  Serious: Yes (Hospitalization)
  Sender: FDA-Public Use
  Company Number: PHHY2012BR039425

PATIENT
  Age: 84 Year
  Sex: Male

DRUGS (1)
  1. ZELMAC [Suspect]
     Dosage: 6 MG, UNK

REACTIONS (1)
  - ABDOMINAL DISTENSION [None]
